FAERS Safety Report 15869009 (Version 2)
Quarter: 2019Q1

REPORT INFORMATION
  Report Type: Report from Study
  Country: ES (occurrence: ES)
  Receive Date: 20190125
  Receipt Date: 20190207
  Transmission Date: 20190417
  Serious: Yes (Hospitalization)
  Sender: FDA-Public Use
  Company Number: ES-ALNYLAM PHARMACEUTICALS, INC.-ALN-2017-000145

PATIENT
  Age: 75 Year
  Sex: Male
  Weight: 72 kg

DRUGS (18)
  1. ALN-TTR02 [Suspect]
     Active Substance: PATISIRAN SODIUM
     Indication: HEREDITARY NEUROPATHIC AMYLOIDOSIS
     Dosage: 0.3 MG/KG, ONCE EVERY 21 DAYS
     Route: 042
     Dates: start: 20170320, end: 20190108
  2. PARACETAMOL [Suspect]
     Active Substance: ACETAMINOPHEN
     Indication: PROPHYLAXIS
     Dosage: 500 MG, ADMINISTERED PRIOR TO STUDY DRUG ADMINISTRATION
     Route: 048
     Dates: start: 20170320
  3. BISOPROLOL [Concomitant]
     Active Substance: BISOPROLOL
     Dosage: 2.5 MILLIGRAM, BID
     Route: 048
     Dates: start: 20170209, end: 20181225
  4. DULOXETIN 1A PHARMA [Concomitant]
     Active Substance: DULOXETINE HYDROCHLORIDE
     Indication: DEPRESSION
     Dosage: 90 MG, QD
     Route: 048
     Dates: start: 20160817
  5. BOTULINUM TOXIN [Concomitant]
     Active Substance: BOTULINUM TOXIN NOS
     Indication: FACIAL SPASM
     Dosage: AS INDICATED BY NEUROPHYSIOLOGIST, INTERNATIONAL UNITS
     Dates: start: 2011
  6. DEXAMETHASONE. [Suspect]
     Active Substance: DEXAMETHASONE
     Indication: PROPHYLAXIS
     Dosage: 10 MG, ADMINISTERED PRIOR TO STUDY DRUG ADMINISTRATION
     Route: 042
     Dates: start: 20170320
  7. VITAMIN A [Suspect]
     Active Substance: VITAMIN A
     Indication: PROPHYLAXIS
     Dosage: 5000 IU, QOD
     Route: 048
     Dates: start: 2015
  8. ROSUVASTATIN. [Concomitant]
     Active Substance: ROSUVASTATIN
     Indication: HYPERCHOLESTEROLAEMIA
     Dosage: 5 MG, QD
     Route: 048
     Dates: start: 2009
  9. RANITIDINE. [Suspect]
     Active Substance: RANITIDINE
     Indication: PROPHYLAXIS
     Dosage: 50 MG, ADMINISTERED PRIOR TO STUDY DRUG ADMINISTRATION
     Route: 042
     Dates: start: 20170320
  10. DEXCHLORPHENIRAMINE [Suspect]
     Active Substance: DEXCHLORPHENIRAMINE
     Indication: PROPHYLAXIS
     Dosage: 5 MG, ADMINISTERED PRIOR TO STUDY DRUG ADMINISTRATION
     Route: 042
     Dates: start: 20170320
  11. FUROSEMIDE. [Concomitant]
     Active Substance: FUROSEMIDE
     Dosage: 40 MILLIGRAM, BID
     Route: 048
     Dates: start: 20170502, end: 20170918
  12. DULOXETIN 1A PHARMA [Concomitant]
     Active Substance: DULOXETINE HYDROCHLORIDE
     Dosage: 90 MG, QD
     Route: 048
     Dates: start: 20160831, end: 20180323
  13. PREGABALIN. [Concomitant]
     Active Substance: PREGABALIN
     Indication: NEURALGIA
     Dosage: 150 MG, 1-0-1/2
     Route: 048
     Dates: start: 20150828
  14. PREGABALIN. [Concomitant]
     Active Substance: PREGABALIN
     Dosage: 150 UNK, 1-01/2
     Route: 048
     Dates: start: 20150826
  15. FUROSEMIDE. [Concomitant]
     Active Substance: FUROSEMIDE
     Dosage: 40 MG, BID
     Route: 048
  16. BISOPROLOL [Concomitant]
     Active Substance: BISOPROLOL
     Indication: HYPERTENSION
     Dosage: 2.5 MG, QD
     Route: 048
     Dates: start: 2005
  17. FUROSEMIDE. [Concomitant]
     Active Substance: FUROSEMIDE
     Indication: HYPERTENSION
     Dosage: 20 MG, QD
     Route: 048
     Dates: start: 2014, end: 201705
  18. FUROSEMIDE. [Concomitant]
     Active Substance: FUROSEMIDE
     Dosage: 40 MG, QD
     Route: 048
     Dates: start: 20170209, end: 20170502

REACTIONS (3)
  - Cellulitis [Recovered/Resolved]
  - Hypotension [Recovered/Resolved]
  - Phlebitis [Recovered/Resolved]

NARRATIVE: CASE EVENT DATE: 20170504
